FAERS Safety Report 16345918 (Version 1)
Quarter: 2019Q2

REPORT INFORMATION
  Report Type: Spontaneous
  Country: HR (occurrence: HR)
  Receive Date: 20190523
  Receipt Date: 20190523
  Transmission Date: 20190711
  Serious: Yes (Other)
  Sender: FDA-Public Use
  Company Number: HR-GLAXOSMITHKLINE-HR2019GSK092161

PATIENT
  Age: 3 Year
  Sex: Female
  Weight: 12 kg

DRUGS (1)
  1. SALBUTAMOL [Suspect]
     Active Substance: ALBUTEROL
     Indication: PRODUCT USED FOR UNKNOWN INDICATION
     Dosage: UNK (20 MG)
     Route: 048
     Dates: start: 20181217, end: 20181217

REACTIONS (4)
  - Accidental exposure to product by child [Unknown]
  - Accidental overdose [Unknown]
  - Incorrect route of product administration [Unknown]
  - Tachycardia [Unknown]

NARRATIVE: CASE EVENT DATE: 20181217
